FAERS Safety Report 22629258 (Version 5)
Quarter: 2023Q4

REPORT INFORMATION
  Report Type: Spontaneous
  Country: PT (occurrence: PT)
  Receive Date: 20230622
  Receipt Date: 20231026
  Transmission Date: 20240109
  Serious: Yes (Death, Hospitalization, Other)
  Sender: FDA-Public Use
  Company Number: PT-SA-SAC20230621000739

PATIENT
  Age: 56 Year
  Sex: Male

DRUGS (18)
  1. FABRAZYME [Suspect]
     Active Substance: AGALSIDASE BETA
     Indication: Fabry^s disease
     Dosage: 1 MG/KG, Q15D
     Route: 042
     Dates: start: 20060131
  2. FABRAZYME [Suspect]
     Active Substance: AGALSIDASE BETA
     Dosage: 0.5 MG/KG;QOW FORTNIGHTLY
     Route: 042
     Dates: start: 200910, end: 2023
  3. FABRAZYME [Suspect]
     Active Substance: AGALSIDASE BETA
     Dosage: 1 MG/KG, QOW
     Route: 042
     Dates: start: 20170821, end: 20230513
  4. BISOPROLOL [Concomitant]
     Active Substance: BISOPROLOL\BISOPROLOL FUMARATE
     Dosage: IC 1/2ID
  5. IRBESARTAN [Concomitant]
     Active Substance: IRBESARTAN
     Dosage: 75 MG 1/2+1 ID
  6. FINASTERIDE [Concomitant]
     Active Substance: FINASTERIDE
     Dosage: 5 MG ID
  7. SILODOSIN [Concomitant]
     Active Substance: SILODOSIN
     Dosage: 8 MG ID
  8. ATORVASTATIN [Concomitant]
     Active Substance: ATORVASTATIN
     Dosage: ATORVASTATIN 20 MG ID
  9. ALLOPURINOL [Concomitant]
     Active Substance: ALLOPURINOL
     Dosage: 100 MG ID
  10. CHOLECALCIFEROL [Concomitant]
     Active Substance: CHOLECALCIFEROL
     Dosage: 22400 IU, BIW (BIWEEKLY)
  11. AMITRIPTYLINE [Concomitant]
     Active Substance: AMITRIPTYLINE
     Dosage: 25 MG ID
  12. CALCIUM ACETATE;MAGNESIUM CARBONATE [Concomitant]
     Dosage: 435 + 235 MG 3 ID
  13. ASPIRIN [Concomitant]
     Active Substance: ASPIRIN
     Dosage: 100 MG ID
  14. TRIMETAZIDINE [Concomitant]
     Active Substance: TRIMETAZIDINE
     Dosage: 35 MG 2 ID
  15. IRON [Concomitant]
     Active Substance: IRON
     Dosage: UNK UNK, QW
     Route: 042
  16. VITAMIN B [Concomitant]
     Active Substance: VITAMIN B
     Dosage: UNK, TIW (TRIWEEKLY)
     Route: 048
  17. EPOETIN BETA [Concomitant]
     Active Substance: ERYTHROPOIETIN
     Dosage: 10000 IU, Q3W
     Route: 058
  18. FOLIC ACID [Concomitant]
     Active Substance: FOLIC ACID
     Dosage: 5 MG

REACTIONS (16)
  - Anoxia [Fatal]
  - Cardio-respiratory arrest [Fatal]
  - Seizure [Unknown]
  - Device related infection [Unknown]
  - Hypertrophic cardiomyopathy [Unknown]
  - Myoclonic epilepsy [Unknown]
  - Electroencephalogram abnormal [Unknown]
  - Peritonitis [Unknown]
  - End stage renal disease [Unknown]
  - Disease progression [Unknown]
  - Blood creatinine increased [Unknown]
  - Proteinuria [Unknown]
  - Obstruction [Unknown]
  - Vertigo [Unknown]
  - Condition aggravated [Unknown]
  - Tinnitus [Unknown]

NARRATIVE: CASE EVENT DATE: 20210212
